FAERS Safety Report 7037554-5 (Version None)
Quarter: 2010Q4

REPORT INFORMATION
  Report Type: 
  Country: None (occurrence: None)
  Receive Date: 20101011
  Receipt Date: 20101005
  Transmission Date: 20110411
  Serious: Yes (Other)
  Sender: FDA-Public Use
  Company Number: US-ROXANE LABORATORIES, INC.-2010-RO-01313RO

PATIENT
  Age: 78 Year
  Sex: Female

DRUGS (11)
  1. LIDOCAINE [Suspect]
     Indication: ECHOCARDIOGRAM
  2. MEPERIDINE HCL [Suspect]
     Indication: SEDATION
     Route: 042
  3. MIDAZOLAM HCL [Suspect]
     Indication: SEDATION
     Route: 042
  4. BENZOCAINE [Suspect]
     Indication: ANAESTHESIA
     Route: 061
  5. ENOXAPARIN SODIUM [Suspect]
  6. ASPIRIN [Suspect]
  7. CLOPIDOGREL [Suspect]
  8. METOPROLOL TARTRATE [Suspect]
  9. PIOGLITAZONE [Suspect]
  10. CLONIDINE [Suspect]
  11. PANTOPRAZOLE [Suspect]

REACTIONS (7)
  - ACUTE RESPIRATORY DISTRESS SYNDROME [None]
  - ANXIETY [None]
  - CONFUSIONAL STATE [None]
  - CYANOSIS [None]
  - HYPERHIDROSIS [None]
  - METHAEMOGLOBINAEMIA [None]
  - OXYGEN SATURATION DECREASED [None]
